FAERS Safety Report 20463233 (Version 1)
Quarter: 2022Q1

REPORT INFORMATION
  Report Type: Report from Study
  Country: DE (occurrence: DE)
  Receive Date: 20220211
  Receipt Date: 20220211
  Transmission Date: 20220423
  Serious: Yes (Other)
  Sender: FDA-Public Use
  Company Number: DE-TEVA-2022-DE-2006408

PATIENT
  Age: 55 Year
  Sex: Female

DRUGS (1)
  1. COPAXONE [Suspect]
     Active Substance: GLATIRAMER ACETATE
     Indication: Multiple sclerosis
     Dates: start: 20190403, end: 20210501

REACTIONS (8)
  - Gait disturbance [Recovered/Resolved]
  - Dizziness [Recovered/Resolved]
  - Headache [Recovered/Resolved]
  - Memory impairment [Recovered/Resolved]
  - Flushing [Recovered/Resolved]
  - Injection site discolouration [Recovered/Resolved]
  - Injection site mass [Recovered/Resolved]
  - Injection site exfoliation [Recovered/Resolved]

NARRATIVE: CASE EVENT DATE: 20190101
